FAERS Safety Report 17376926 (Version 2)
Quarter: 2020Q1

REPORT INFORMATION
  Report Type: Report from Study
  Country: IT (occurrence: IT)
  Receive Date: 20200206
  Receipt Date: 20200218
  Transmission Date: 20200409
  Serious: Yes (Death)
  Sender: FDA-Public Use
  Company Number: IT-EMD SERONO-E2B_90074727

PATIENT
  Age: 78 Year
  Sex: Male
  Weight: 73 kg

DRUGS (10)
  1. GEMCITABINE HCL [Suspect]
     Active Substance: GEMCITABINE HYDROCHLORIDE
     Indication: TRANSITIONAL CELL CARCINOMA
     Dosage: 1335 MG, CYCLIC (DAY 1 AND DAY 8, EVERY 3 WEEKS)
     Route: 041
     Dates: start: 20191213, end: 20200131
  2. BIFRIZIDE [Concomitant]
     Active Substance: HYDROCHLOROTHIAZIDE
     Indication: HYPERTENSION
     Dosage: UNK
     Dates: start: 2011
  3. DIAMICRON [Concomitant]
     Active Substance: GLICLAZIDE
     Indication: DIABETES MELLITUS
     Dosage: UNK
     Dates: start: 2011
  4. AVELUMAB [Suspect]
     Active Substance: AVELUMAB
     Indication: TRANSITIONAL CELL CARCINOMA
     Dosage: 1200 MG, CYCLIC (DAY 1, EVERY 3 WEEKS)
     Route: 041
     Dates: start: 20191213, end: 20200131
  5. ESKIM [Concomitant]
     Active Substance: OMEGA-3 FATTY ACIDS
     Indication: HYPERTRIGLYCERIDAEMIA
     Dosage: UNK
     Dates: start: 2011
  6. PEPTAZOL                           /01263204/ [Concomitant]
     Active Substance: PANTOPRAZOLE SODIUM
     Indication: PROPHYLAXIS
     Dosage: UNK
     Dates: start: 2015
  7. PEAPROSTIL [Concomitant]
     Indication: BENIGN PROSTATIC HYPERPLASIA
     Dosage: UNK
     Dates: start: 1999
  8. CISPLATIN. [Suspect]
     Active Substance: CISPLATIN
     Indication: TRANSITIONAL CELL CARCINOMA
     Dosage: 93 MG, CYCLIC (DAY 1, EVERY 3 WEEKS)
     Route: 041
     Dates: start: 20191213, end: 20200131
  9. TECNOFER PLUS [Concomitant]
     Indication: ANAEMIA
     Dosage: UNK
     Dates: start: 20191227
  10. NEUROPOL [Concomitant]
     Indication: DRY MOUTH
     Dosage: UNK
     Dates: start: 1999

REACTIONS (1)
  - Sudden death [Fatal]

NARRATIVE: CASE EVENT DATE: 20200131
